FAERS Safety Report 21303357 (Version 1)
Quarter: 2022Q3

REPORT INFORMATION
  Report Type: Spontaneous
  Country: GB (occurrence: GB)
  Receive Date: 20220907
  Receipt Date: 20220907
  Transmission Date: 20221027
  Serious: Yes (Other)
  Sender: FDA-Public Use
  Company Number: None

PATIENT
  Age: 87 Year
  Sex: Female
  Weight: 65 kg

DRUGS (3)
  1. QUININE SULFATE [Suspect]
     Active Substance: QUININE SULFATE
     Indication: Muscle spasms
     Dosage: UNIT DOSE : 200 MG
     Route: 065
  2. CLOPIDOGREL [Suspect]
     Active Substance: CLOPIDOGREL BISULFATE
     Indication: Product used for unknown indication
     Dosage: UNIT DOSE : 75 MG,  THERAPY END DATE : NOT ASKED
     Route: 065
     Dates: start: 201506
  3. FUROSEMIDE [Suspect]
     Active Substance: FUROSEMIDE
     Indication: Polyuria
     Dosage: 40MG THEN REDUCED TO 20MG,  THERAPY END DATE : NOT ASKED, UNIT DOSE : 20 MG,
     Route: 065
     Dates: start: 201506

REACTIONS (3)
  - Deafness [Not Recovered/Not Resolved]
  - Oral pain [Unknown]
  - Drug ineffective [Not Recovered/Not Resolved]
